FAERS Safety Report 24877763 (Version 1)
Quarter: 2025Q1

REPORT INFORMATION
  Report Type: Spontaneous
  Country: GB (occurrence: GB)
  Receive Date: 20250123
  Receipt Date: 20250123
  Transmission Date: 20250409
  Serious: Yes (Other)
  Sender: DEXCEL
  Company Number: GB-MHRA-TPP23148290C2182674YC1733475007236

PATIENT
  Age: 58 Year
  Sex: Female
  Weight: 94 kg

DRUGS (6)
  1. CHLORHEXIDINE [Suspect]
     Active Substance: CHLORHEXIDINE
  2. TRIAMCINOLONE ACETONIDETRIAMCINOLONE (Specific Substance SUB560) [Concomitant]
     Dates: start: 20240927, end: 20240928
  3. HYDROCORTISONE\MICONAZOLE NITRATE [Concomitant]
     Active Substance: HYDROCORTISONE\MICONAZOLE NITRATE
     Dates: start: 20220817
  4. LEVOTHYROXINELEVOTHYROXINE (Specific Substance SUB532) [Concomitant]
     Dosage: TAKE ONE EACH MORNING ^MERCURY BRAND^
     Dates: start: 20230606
  5. PERINDOPRIL ERBUMINEPERINDOPRIL (Specific Substance SUB727) [Concomitant]
     Dosage: TAKE ONE TWICE DAILY
     Dates: start: 20230713
  6. ESTRADIOL [Concomitant]
     Active Substance: ESTRADIOL
     Dates: start: 20230922

REACTIONS (2)
  - Skin exfoliation [Unknown]
  - Skin irritation [Recovered/Resolved]
